FAERS Safety Report 14838223 (Version 1)
Quarter: 2018Q2

REPORT INFORMATION
  Report Type: Spontaneous
  Country: ES (occurrence: ES)
  Receive Date: 20180502
  Receipt Date: 20180502
  Transmission Date: 20180711
  Serious: Yes (Hospitalization)
  Sender: FDA-Public Use
  Company Number: ES-MYLANLABS-2018M1027436

PATIENT
  Age: 84 Year
  Sex: Female
  Weight: 47 kg

DRUGS (3)
  1. ESPIRONOLACTONA [Suspect]
     Active Substance: SPIRONOLACTONE
     Indication: HYPERTENSION
     Dosage: 50 MG, QD (ALDACTONE 100 MG (0-1/2-0))
     Route: 048
     Dates: start: 20160425, end: 20180112
  2. FUROSEMIDE. [Suspect]
     Active Substance: FUROSEMIDE
     Indication: HYPERTENSION
     Dosage: 40 MG, QD (40 MG POR LA MA?ANA)
     Route: 048
     Dates: start: 20160425, end: 20180112
  3. ENALAPRIL [Suspect]
     Active Substance: ENALAPRIL
     Indication: HYPERTENSION
     Dosage: 2.5 MG, QD (ENALAPRIL 5 MG (MEDIO COMP POR LAS MA?ANAS)
     Route: 048
     Dates: start: 20160425, end: 20180115

REACTIONS (2)
  - Hyponatraemia [Recovered/Resolved]
  - Hyperkalaemia [Recovered/Resolved]

NARRATIVE: CASE EVENT DATE: 20180112
